FAERS Safety Report 7007596-4 (Version None)
Quarter: 2010Q3

REPORT INFORMATION
  Report Type: 
  Country: None (occurrence: None)
  Receive Date: 20100917
  Receipt Date: 20100906
  Transmission Date: 20110219
  Serious: Yes (Other)
  Sender: FDA-Public Use
  Company Number: B0674443A

PATIENT
  Age: 63 Year
  Sex: Male

DRUGS (4)
  1. ACYCLOVIR [Suspect]
     Indication: HERPES ZOSTER
  2. ACYCLOVIR [Suspect]
     Indication: HERPES ZOSTER
     Dosage: PARENTERAL
     Route: 051
  3. AMOXICILLIN AND CLAVULANATE POTASSIUM [Concomitant]
  4. ANALGESIC [Concomitant]

REACTIONS (4)
  - BLOOD BILIRUBIN INCREASED [None]
  - DRUG RESISTANCE [None]
  - PNEUMONIA [None]
  - TRANSAMINASES INCREASED [None]
